FAERS Safety Report 9845049 (Version 1)
Quarter: 2014Q1

REPORT INFORMATION
  Report Type: Spontaneous
  Country: GB (occurrence: None)
  Receive Date: 20140122
  Receipt Date: 20140122
  Transmission Date: 20141002
  Serious: Yes (Other)
  Sender: FDA-Public Use
  Company Number: AXC-2014-000046

PATIENT
  Age: 34 Year
  Sex: Female

DRUGS (1)
  1. DICYCLOMINE [Suspect]
     Indication: ABDOMINAL DISTENSION
     Route: 048
     Dates: start: 20131227, end: 20140102

REACTIONS (1)
  - Urinary retention [None]
